FAERS Safety Report 15284581 (Version 1)
Quarter: 2018Q3

REPORT INFORMATION
  Report Type: Spontaneous
  Country: FR (occurrence: FR)
  Receive Date: 20180816
  Receipt Date: 20180816
  Transmission Date: 20181010
  Serious: Yes (Other)
  Sender: FDA-Public Use
  Company Number: FR-MYLANLABS-2018M1061851

PATIENT
  Age: 1 Decade
  Sex: Male

DRUGS (16)
  1. FLUOROURACIL. [Suspect]
     Active Substance: FLUOROURACIL
     Indication: COLORECTAL CANCER METASTATIC
     Dosage: PART OF FOLFOX REGIMEN; RECEIVED 12 CYCLES
     Route: 065
     Dates: start: 200203, end: 200208
  2. FLUOROURACIL. [Suspect]
     Active Substance: FLUOROURACIL
     Indication: METASTASES TO LIVER
     Dosage: PART OF FOLFIRI REGIMEN
     Route: 050
     Dates: start: 200304, end: 200305
  3. IRINOTECAN [Suspect]
     Active Substance: IRINOTECAN
     Indication: METASTASES TO LUNG
     Dosage: 150 MG/M2
     Route: 065
     Dates: start: 200408
  4. FOLINIC ACID [Suspect]
     Active Substance: LEUCOVORIN
     Indication: COLORECTAL CANCER METASTATIC
     Dosage: PART OF FOLFOX REGIMEN;COMPLETED 12 CYCLES
     Route: 065
     Dates: start: 200203, end: 200208
  5. FLUOROURACIL. [Suspect]
     Active Substance: FLUOROURACIL
     Indication: METASTASES TO LYMPH NODES
  6. IRINOTECAN [Suspect]
     Active Substance: IRINOTECAN
     Indication: COLORECTAL CANCER METASTATIC
     Dosage: PART OF FOLFIRI REGIMEN? DRUG WAS WITHDRAWN AFTER FOUR CYCLES DUE TO DEVELOPMENT OF SEVERE DIGEST...
     Route: 065
     Dates: start: 200304
  7. OXALIPLATIN. [Concomitant]
     Active Substance: OXALIPLATIN
     Dosage: PART OF FOLFIRI REGIMEN
     Route: 050
     Dates: start: 200304
  8. FOLINIC ACID [Suspect]
     Active Substance: LEUCOVORIN
     Indication: METASTASES TO LIVER
     Dosage: PART OF FOLFIRI REGIMEN
     Route: 065
     Dates: start: 200304, end: 200305
  9. CETUXIMAB. [Concomitant]
     Active Substance: CETUXIMAB
     Indication: METASTASES TO LYMPH NODES
  10. IRINOTECAN [Suspect]
     Active Substance: IRINOTECAN
     Indication: METASTASES TO LYMPH NODES
  11. CETUXIMAB. [Concomitant]
     Active Substance: CETUXIMAB
     Indication: COLORECTAL CANCER METASTATIC
     Dosage: 400 MG/M2, FIRST INJECTION
     Route: 065
     Dates: start: 200408, end: 200502
  12. CETUXIMAB. [Concomitant]
     Active Substance: CETUXIMAB
     Indication: METASTASES TO LUNG
  13. IRINOTECAN [Suspect]
     Active Substance: IRINOTECAN
     Indication: METASTASES TO LIVER
     Dosage: DOSE WAS LOWERED TO 150 MG/M2 DUE TO DIARRHOEA AND TREATMENT WAS STOPPED AFTER 12 CYCLES AS COMPL...
     Route: 065
     Dates: start: 200408
  14. OXALIPLATIN. [Concomitant]
     Active Substance: OXALIPLATIN
     Indication: COLORECTAL CANCER METASTATIC
     Dosage: PART OF FOLFOX REGIMEN; RECEIVED 12 CYCLES
     Route: 065
     Dates: start: 200203, end: 200208
  15. FOLINIC ACID [Suspect]
     Active Substance: LEUCOVORIN
     Indication: METASTASES TO LYMPH NODES
  16. CETUXIMAB. [Concomitant]
     Active Substance: CETUXIMAB
     Indication: METASTASES TO LIVER
     Dosage: 250 MG/M2, QW
     Route: 065

REACTIONS (2)
  - Diarrhoea [Unknown]
  - Gastrointestinal disorder [Unknown]
